FAERS Safety Report 12054745 (Version 1)
Quarter: 2016Q1

REPORT INFORMATION
  Report Type: Spontaneous
  Country: FR (occurrence: FR)
  Receive Date: 20160209
  Receipt Date: 20160209
  Transmission Date: 20160526
  Serious: Yes (Hospitalization, Other)
  Sender: FDA-Public Use
  Company Number: FR-ASTRAZENECA-2016SE12431

PATIENT
  Age: 24684 Day
  Sex: Male

DRUGS (15)
  1. LASILIX [Suspect]
     Active Substance: FUROSEMIDE
     Indication: SODIUM RETENTION
     Route: 042
     Dates: start: 20150617, end: 20150626
  2. TAZOCILLINE [Suspect]
     Active Substance: PIPERACILLIN SODIUM\TAZOBACTAM SODIUM
     Indication: SEPTIC EMBOLUS
     Route: 042
     Dates: start: 20150617, end: 20150703
  3. MOTILIUM [Concomitant]
     Active Substance: DOMPERIDONE
  4. EUPRESSYL [Suspect]
     Active Substance: URAPIDIL
     Indication: HYPERTENSION
     Route: 042
     Dates: start: 20150623, end: 201507
  5. AMIKACIN [Suspect]
     Active Substance: AMIKACIN
     Indication: SEPTIC EMBOLUS
     Dosage: MYLAN
     Route: 042
     Dates: start: 20150617, end: 20150622
  6. VANCOMYCIN [Suspect]
     Active Substance: VANCOMYCIN
     Indication: SEPTIC EMBOLUS
     Dosage: SANDOZ
     Route: 042
     Dates: start: 20150607, end: 20150620
  7. PARACETAMOL [Concomitant]
     Active Substance: ACETAMINOPHEN
  8. INEXIUM [Suspect]
     Active Substance: ESOMEPRAZOLE
     Indication: PROPHYLAXIS AGAINST GASTROINTESTINAL ULCER
     Route: 042
     Dates: start: 20150602, end: 20150625
  9. BACLOFEN. [Concomitant]
     Active Substance: BACLOFEN
  10. UVEDOSE [Concomitant]
     Active Substance: CHOLECALCIFEROL
  11. EDUCTYL [Concomitant]
     Active Substance: POTASSIUM BITARTRATE\SODIUM BICARBONATE
  12. FLAGYL [Suspect]
     Active Substance: METRONIDAZOLE\METRONIDAZOLE HYDROCHLORIDE
     Indication: SEPTIC EMBOLUS
     Route: 042
     Dates: start: 20150606, end: 20150613
  13. FLAGYL [Suspect]
     Active Substance: METRONIDAZOLE\METRONIDAZOLE HYDROCHLORIDE
     Indication: SEPTIC EMBOLUS
     Route: 042
     Dates: start: 20150623, end: 20150703
  14. TAMSULOSIN [Concomitant]
     Active Substance: TAMSULOSIN
  15. VESICARE [Concomitant]
     Active Substance: SOLIFENACIN SUCCINATE

REACTIONS (8)
  - Clostridium test positive [Unknown]
  - Bacteroides test positive [Unknown]
  - Colonic fistula [Unknown]
  - Pulmonary embolism [Unknown]
  - Septic embolus [Unknown]
  - Urinary tract infection staphylococcal [Unknown]
  - Drug reaction with eosinophilia and systemic symptoms [Recovered/Resolved]
  - Lung disorder [Unknown]

NARRATIVE: CASE EVENT DATE: 20150604
